FAERS Safety Report 6690126-4 (Version None)
Quarter: 2010Q2

REPORT INFORMATION
  Report Type: 
  Country: None (occurrence: None)
  Receive Date: 20100421
  Receipt Date: 20100416
  Transmission Date: 20101027
  Serious: Yes (Death, Hospitalization)
  Sender: FDA-Public Use
  Company Number: PHHY2010ZA23146

PATIENT
  Age: 45 Year
  Sex: Female

DRUGS (4)
  1. VOLTAREN [Suspect]
     Indication: HEADACHE
     Dosage: UNK
     Dates: start: 20100311
  2. RAYZON [Suspect]
     Indication: HEADACHE
     Dosage: 40 MG, UNK
     Dates: start: 20100311
  3. CELESTONE SOLUSPAN [Suspect]
     Indication: HEADACHE
     Dosage: UNK
     Dates: start: 20100311
  4. ANTIDEPRESSANTS [Concomitant]
     Dosage: UNK

REACTIONS (13)
  - ANAPHYLACTIC REACTION [None]
  - CONVULSION [None]
  - DIALYSIS [None]
  - GASTROINTESTINAL HAEMORRHAGE [None]
  - HAEMOGLOBIN DECREASED [None]
  - HEPATIC ENZYME INCREASED [None]
  - HYPOXIC ENCEPHALOPATHY [None]
  - LOSS OF CONSCIOUSNESS [None]
  - MULTI-ORGAN FAILURE [None]
  - PNEUMONIA [None]
  - RENAL FAILURE [None]
  - TRACHEOSTOMY [None]
  - UNRESPONSIVE TO STIMULI [None]
